FAERS Safety Report 4728004-X (Version None)
Quarter: 2005Q3

REPORT INFORMATION
  Report Type: 
  Country: None (occurrence: None)
  Receive Date: 20050725
  Receipt Date: 20050401
  Transmission Date: 20060218
  Serious: No
  Sender: FDA-Public Use
  Company Number: USA050494768

PATIENT
  Age: 32 Year
  Sex: Male

DRUGS (2)
  1. STRATTERA [Suspect]
     Indication: ATTENTION DEFICIT/HYPERACTIVITY DISORDER
     Dosage: 25 MG DAY
     Dates: start: 20050331
  2. XANAX [Concomitant]

REACTIONS (6)
  - COLD SWEAT [None]
  - DIARRHOEA [None]
  - FEELING ABNORMAL [None]
  - MOOD SWINGS [None]
  - SCREAMING [None]
  - VOMITING [None]
